FAERS Safety Report 8059538-0 (Version None)
Quarter: 2012Q1

REPORT INFORMATION
  Report Type: 
  Country: None (occurrence: None)
  Receive Date: 20120119
  Receipt Date: 20120119
  Transmission Date: 20120608
  Serious: Yes (Hospitalization)
  Sender: FDA-Public Use
  Company Number: None

PATIENT
  Sex: Female
  Weight: 101.4 kg

DRUGS (11)
  1. METHOXYAMINE [Suspect]
     Indication: CHRONIC LYMPHOCYTIC LEUKAEMIA
     Dosage: 15 MG/M2 DAY 1 IV
     Route: 042
     Dates: start: 20120109
  2. METOPROLOL [Concomitant]
  3. HYDROCHLOROTHIAZIDE [Concomitant]
  4. VITAMIN D2 [Concomitant]
  5. ONDANSETRON HCL [Concomitant]
  6. ANASTROZOLE [Concomitant]
  7. WARFARIN SODIUM [Concomitant]
  8. SYNTHROID [Concomitant]
  9. ANTIVERT [Concomitant]
  10. FLUDARABINE PHOSPHATE [Suspect]
     Indication: CHRONIC LYMPHOCYTIC LEUKAEMIA
     Dosage: 25 MG/M2 DAILY X5 IV
     Route: 042
     Dates: start: 20120109, end: 20120113
  11. KLOR-CON [Concomitant]

REACTIONS (5)
  - NEUTROPHIL COUNT DECREASED [None]
  - PYREXIA [None]
  - DEHYDRATION [None]
  - APHAGIA [None]
  - NAUSEA [None]
